FAERS Safety Report 8052756-7 (Version None)
Quarter: 2011Q4

REPORT INFORMATION
  Report Type: 
  Country: None (occurrence: None)
  Receive Date: 20111223
  Receipt Date: 20110808
  Transmission Date: 20120403
  Serious: Yes (Death, Other)
  Sender: FDA-Public Use
  Company Number: 2011029472

PATIENT
  Age: 69 Year
  Sex: Female

DRUGS (13)
  1. PRIVIGEN [Suspect]
     Indication: MYELODYSPLASTIC SYNDROME
     Dosage: 40 G QD
     Dates: start: 20110729, end: 20110730
  2. PRIVIGEN [Suspect]
     Indication: THROMBOCYTOPENIA
     Dosage: 40 G QD
     Dates: start: 20110729, end: 20110730
  3. BLOOD TRASFUSION, AUXILIARY PRODUCTS (BLOOD TRANSFUSION, AUXILIARY PRO [Concomitant]
  4. SIMVASTATIN [Concomitant]
  5. AMLODIPINE [Concomitant]
  6. PIPERACILLIN AND TAZOBACTAM [Concomitant]
  7. DIPYRIDAMOLE [Concomitant]
  8. LISINOPRIL [Concomitant]
  9. ACETAMINOPHEN W/ CODEINE [Concomitant]
  10. GENTAMICIN [Concomitant]
  11. PRAVASTATIN [Concomitant]
  12. OMEPRAZOLE [Concomitant]
  13. ITRACONAZOLE [Concomitant]

REACTIONS (5)
  - RENAL FAILURE [None]
  - SUBDURAL HAEMORRHAGE [None]
  - INTRAVASCULAR HAEMOLYSIS [None]
  - HAEMATURIA [None]
  - ANAEMIA [None]
